FAERS Safety Report 6060146-1 (Version None)
Quarter: 2009Q1

REPORT INFORMATION
  Report Type: 
  Country: None (occurrence: None)
  Receive Date: 20090127
  Receipt Date: 20090122
  Transmission Date: 20090719
  Serious: Yes (Life-Threatening, Hospitalization)
  Sender: FDA-Public Use
  Company Number: 2008-180772-NL

PATIENT
  Age: 77 Year
  Sex: Male

DRUGS (5)
  1. MIRTAZAPINE [Suspect]
     Dosage: 15 MG QD
     Route: 048
     Dates: start: 20060101
  2. FLUINDIONE [Suspect]
     Dosage: 10 MG QD
     Route: 048
     Dates: start: 20060101, end: 20080605
  3. SERENOA REPENS [Concomitant]
  4. ENOXAPARIN SODIUM [Concomitant]
  5. AUGMENTIN /SCH/ [Concomitant]

REACTIONS (7)
  - BRONCHITIS [None]
  - HEMIPLEGIA [None]
  - INTERNATIONAL NORMALISED RATIO INCREASED [None]
  - INTRACRANIAL PRESSURE INCREASED [None]
  - SUBDURAL HAEMATOMA [None]
  - SUBDURAL HYGROMA [None]
  - SUPERINFECTION [None]
